FAERS Safety Report 25353367 (Version 2)
Quarter: 2025Q2

REPORT INFORMATION
  Report Type: Spontaneous
  Country: ES (occurrence: ES)
  Receive Date: 20250523
  Receipt Date: 20250530
  Transmission Date: 20250717
  Serious: Yes (Other)
  Sender: SANOFI AVENTIS
  Company Number: ES-BIOVITRUM-2025-ES-007052

PATIENT
  Age: 11 Year
  Sex: Male

DRUGS (2)
  1. EFANESOCTOCOG ALFA [Suspect]
     Active Substance: EFANESOCTOCOG ALFA
     Indication: Product used for unknown indication
     Route: 042
     Dates: start: 202412
  2. EMICIZUMAB [Concomitant]
     Active Substance: EMICIZUMAB
     Indication: Anti factor VIII antibody increased
     Dates: start: 202504

REACTIONS (3)
  - Anti factor VIII antibody increased [Unknown]
  - Contusion [Unknown]
  - Ingrowing nail [Recovering/Resolving]
